FAERS Safety Report 15018365 (Version 1)
Quarter: 2018Q2

REPORT INFORMATION
  Report Type: Spontaneous
  Country: US (occurrence: US)
  Receive Date: 20180615
  Receipt Date: 20180615
  Transmission Date: 20180711
  Serious: Yes (Other)
  Sender: FDA-Public Use
  Company Number: US-MYLANLABS-2018M1041076

PATIENT
  Age: 75 Year
  Sex: Female
  Weight: 51.6 kg

DRUGS (1)
  1. AZATHIOPRINE. [Suspect]
     Active Substance: AZATHIOPRINE
     Indication: CROHN^S DISEASE
     Dosage: 3.4 MG/KG DOSE
     Route: 065

REACTIONS (3)
  - Weight decreased [Unknown]
  - Epstein Barr virus positive mucocutaneous ulcer [Recovered/Resolved]
  - Anaemia macrocytic [Not Recovered/Not Resolved]
